FAERS Safety Report 8106778-8 (Version None)
Quarter: 2012Q1

REPORT INFORMATION
  Report Type: 
  Country: None (occurrence: None)
  Receive Date: 20120202
  Receipt Date: 20120110
  Transmission Date: 20120608
  Serious: No
  Sender: FDA-Public Use
  Company Number: US-JNJFOC-20111205287

PATIENT

DRUGS (2)
  1. ANTICOAGULANTS [Suspect]
     Indication: ILL-DEFINED DISORDER
  2. XARELTO [Suspect]
     Indication: ILL-DEFINED DISORDER
     Route: 048

REACTIONS (1)
  - CONTUSION [None]
